FAERS Safety Report 25772979 (Version 1)
Quarter: 2025Q3

REPORT INFORMATION
  Report Type: Spontaneous
  Country: US (occurrence: None)
  Receive Date: 20250905
  Receipt Date: 20250905
  Transmission Date: 20251020
  Serious: Yes (Disabling)
  Sender: FDA-CTU
  Company Number: None

PATIENT
  Age: 57 Year
  Sex: Female
  Weight: 60.3 kg

DRUGS (4)
  1. BUPRENORPHINE HYDROCHLORIDE\NALOXONE [Suspect]
     Active Substance: BUPRENORPHINE HYDROCHLORIDE\NALOXONE
     Indication: Fibromyalgia
     Dosage: 2.5 FILM TWICE A DAY SUBLINGUAL ?
     Route: 060
     Dates: start: 20071101
  2. MOUNJARO [Concomitant]
     Active Substance: TIRZEPATIDE
  3. Farxica [Concomitant]
  4. INSULIN NOS [Concomitant]
     Active Substance: INSULIN NOS

REACTIONS (6)
  - Dental caries [None]
  - Tooth loss [None]
  - Gingival disorder [None]
  - Gastrointestinal disorder [None]
  - Social problem [None]
  - Loss of employment [None]

NARRATIVE: CASE EVENT DATE: 20110201
